FAERS Safety Report 8550602-6 (Version None)
Quarter: 2012Q3

REPORT INFORMATION
  Report Type: 
  Country: None (occurrence: None)
  Receive Date: 20120730
  Receipt Date: 20110624
  Transmission Date: 20120928
  Serious: No
  Sender: FDA-Public Use
  Company Number: US-ALLERGAN-1108577US

PATIENT
  Age: 58 Year
  Sex: Male

DRUGS (2)
  1. TIMOLOL MALEATE [Concomitant]
  2. LUMIGAN [Suspect]
     Indication: INTRAOCULAR PRESSURE INCREASED
     Dosage: 1 GTT, QHS
     Route: 047
     Dates: start: 20100101, end: 20110601

REACTIONS (1)
  - IRIS DISORDER [None]
